FAERS Safety Report 5615556-0 (Version None)
Quarter: 2008Q1

REPORT INFORMATION
  Report Type: 
  Country: None (occurrence: None)
  Receive Date: 20080201
  Receipt Date: 20080130
  Transmission Date: 20080703
  Serious: Yes (Hospitalization, Other)
  Sender: FDA-Public Use
  Company Number: 2007SP022311

PATIENT
  Age: 66 Year
  Sex: Female
  Weight: 58 kg

DRUGS (8)
  1. PEG-INTRON [Suspect]
     Indication: HEPATITIS C
     Dosage: 80 MCG;QW;SC, 80 MCG;QW;SC,
     Route: 058
     Dates: start: 20071031, end: 20071031
  2. PEG-INTRON [Suspect]
     Indication: HEPATITIS C
     Dosage: 80 MCG;QW;SC, 80 MCG;QW;SC,
     Route: 058
     Dates: start: 20071114
  3. REBETOL [Suspect]
     Indication: HEPATITIS C
     Dosage: 600 MG;QD;PO, 600 MG,QD;PO
     Route: 048
     Dates: start: 20071031, end: 20071031
  4. REBETOL [Suspect]
     Indication: HEPATITIS C
     Dosage: 600 MG;QD;PO, 600 MG,QD;PO
     Route: 048
     Dates: start: 20071102
  5. SYNCOPE VASOVAGAL (NEURALLY MEDIATED SYNCOPE) [Concomitant]
  6. CEPHALHAEMATOMA (CEPHALHAEMATOMA) [Concomitant]
  7. MUCOSTA [Concomitant]
  8. LOXONIN [Concomitant]

REACTIONS (5)
  - CEPHALHAEMATOMA [None]
  - FALL [None]
  - INCONTINENCE [None]
  - LOSS OF CONSCIOUSNESS [None]
  - SYNCOPE VASOVAGAL [None]
